FAERS Safety Report 12259189 (Version 1)
Quarter: 2016Q2

REPORT INFORMATION
  Report Type: Spontaneous
  Country: US (occurrence: US)
  Receive Date: 20160412
  Receipt Date: 20160412
  Transmission Date: 20160815
  Serious: No
  Sender: FDA-Public Use
  Company Number: US-SA-2015SA068168

PATIENT
  Age: 7 Year
  Sex: Female

DRUGS (2)
  1. CHILDREN^S ALLERGY, ORALLY DISINTEGRATING TABLETS [Suspect]
     Active Substance: FEXOFENADINE HYDROCHLORIDE
     Indication: MULTIPLE ALLERGIES
     Dosage: PRODUCT START DATE- A WEEK AGO
     Route: 048
  2. CHILDREN^S ALLERGY, ORALLY DISINTEGRATING TABLETS [Suspect]
     Active Substance: FEXOFENADINE HYDROCHLORIDE
     Indication: MULTIPLE ALLERGIES
     Dosage: ALLEGRA CHILDREN^S ORAL SUSPENSION OTC
     Route: 048

REACTIONS (1)
  - Dysgeusia [Unknown]
